FAERS Safety Report 20025894 (Version 1)
Quarter: 2021Q4

REPORT INFORMATION
  Report Type: Spontaneous
  Country: NL (occurrence: NL)
  Receive Date: 20211102
  Receipt Date: 20211102
  Transmission Date: 20220303
  Serious: Yes (Hospitalization, Other)
  Sender: FDA-Public Use
  Company Number: None

PATIENT
  Age: 70 Year
  Sex: Female
  Weight: 50 kg

DRUGS (1)
  1. LISINOPRIL [Suspect]
     Active Substance: LISINOPRIL
     Indication: Hypertension
     Dosage: 1X
     Route: 065
     Dates: start: 20210712, end: 20210724

REACTIONS (7)
  - Erythema multiforme [Recovered/Resolved]
  - Hyperpyrexia [Recovering/Resolving]
  - Nausea [Recovering/Resolving]
  - Paraesthesia [Unknown]
  - Malaise [Recovering/Resolving]
  - Tachycardia [Unknown]
  - Fatigue [Not Recovered/Not Resolved]

NARRATIVE: CASE EVENT DATE: 20210723
